FAERS Safety Report 6427840-1 (Version None)
Quarter: 2009Q4

REPORT INFORMATION
  Report Type: 
  Country: None (occurrence: None)
  Receive Date: 20091104
  Receipt Date: 20091104
  Transmission Date: 20100525
  Serious: No
  Sender: FDA-Public Use
  Company Number: None

PATIENT
  Age: 55 Year
  Sex: Female
  Weight: 107.9561 kg

DRUGS (1)
  1. CATAPRES-TTS-1 [Suspect]
     Indication: HYPERTENSION
     Dosage: 1 MG WEEKLY TRANSDERMAL
     Route: 062
     Dates: start: 20091003, end: 20091102

REACTIONS (2)
  - SKIN BURNING SENSATION [None]
  - SKIN DISCOLOURATION [None]
